FAERS Safety Report 17582590 (Version 2)
Quarter: 2020Q2

REPORT INFORMATION
  Report Type: Report from Study
  Country: BR (occurrence: BR)
  Receive Date: 20200325
  Receipt Date: 20200402
  Transmission Date: 20200713
  Serious: Yes (Other)
  Sender: FDA-Public Use
  Company Number: BR-B.I. PHARMACEUTICALS,INC./RIDGEFIELD-2020-BI-015790

PATIENT
  Age: 59 Year
  Sex: Female
  Weight: 57 kg

DRUGS (5)
  1. DICLOFENACO [DICLOFENAC DIETHYLAMINE] [Concomitant]
     Indication: PAIN
     Route: 065
  2. RIVOTRIL [Concomitant]
     Active Substance: CLONAZEPAM
     Indication: NERVOUS SYSTEM DISORDER
     Route: 048
     Dates: start: 1995
  3. MICARDIS HCT [Suspect]
     Active Substance: HYDROCHLOROTHIAZIDE\TELMISARTAN
     Dosage: DOSE: 40/12.5 MILLIGRAM
     Route: 048
     Dates: start: 20200313
  4. DIPIRONA [Concomitant]
     Active Substance: METAMIZOLE
     Indication: PAIN
     Route: 065
  5. MICARDIS HCT [Suspect]
     Active Substance: HYDROCHLOROTHIAZIDE\TELMISARTAN
     Indication: HYPERTENSION
     Dosage: DOSE:40/12.5 MILLIGRAM
     Route: 048
     Dates: start: 20200210, end: 20200312

REACTIONS (6)
  - Hypoaesthesia [Not Recovered/Not Resolved]
  - Paraesthesia [Not Recovered/Not Resolved]
  - Asthenia [Not Recovered/Not Resolved]
  - Hand deformity [Not Recovered/Not Resolved]
  - Hypertensive crisis [Recovered/Resolved]
  - Paraesthesia [Not Recovered/Not Resolved]

NARRATIVE: CASE EVENT DATE: 20200210
